FAERS Safety Report 12931991 (Version 3)
Quarter: 2016Q4

REPORT INFORMATION
  Report Type: Spontaneous
  Country: JP (occurrence: JP)
  Receive Date: 20161111
  Receipt Date: 20161202
  Transmission Date: 20170207
  Serious: Yes (Hospitalization, Other)
  Sender: FDA-Public Use
  Company Number: JP-AMGEN-JPNSP2016158888

PATIENT
  Age: 7 Year
  Sex: Male
  Weight: 20 kg

DRUGS (9)
  1. CEFPIROME SULFATE [Concomitant]
     Active Substance: CEFPIROME SULFATE
     Dosage: 700 MG, TID
     Route: 041
     Dates: start: 20161025, end: 20161031
  2. FLUCONAZOLE. [Concomitant]
     Active Substance: FLUCONAZOLE
     Dosage: 60 MG, QD
     Route: 048
     Dates: start: 20161025, end: 201611
  3. BACTRAMIN [Concomitant]
     Active Substance: SULFAMETHOXAZOLE\TRIMETHOPRIM
     Dosage: 1 G, BID
     Route: 048
     Dates: start: 20161025
  4. FAMOTIDINE. [Concomitant]
     Active Substance: FAMOTIDINE
     Dosage: 10 MG, BID
     Route: 048
     Dates: start: 20161025
  5. CICLOSPORIN [Concomitant]
     Active Substance: CYCLOSPORINE
     Indication: APLASTIC ANAEMIA
     Dosage: 75 MG, BID
     Route: 048
     Dates: start: 20161025, end: 20161115
  6. SOL-MELCORT [Concomitant]
     Active Substance: METHYLPREDNISOLONE SODIUM SUCCINATE
     Dosage: 20 MG, BID
     Route: 041
     Dates: start: 20161025, end: 20161029
  7. THYMOGLOBULINE [Suspect]
     Active Substance: LAPINE T-LYMPHOCYTE IMMUNE GLOBULIN
     Indication: APLASTIC ANAEMIA
     Dosage: 50 MG, QD
     Route: 041
     Dates: start: 20161025, end: 20161029
  8. ATARAX-P                           /00058402/ [Concomitant]
     Active Substance: HYDROXYZINE HYDROCHLORIDE
     Dosage: 17.5 MG, BID
     Route: 041
     Dates: start: 20161025, end: 20161029
  9. GRAN [Suspect]
     Active Substance: FILGRASTIM
     Indication: APLASTIC ANAEMIA
     Dosage: 300 MUG, QD
     Route: 041
     Dates: start: 20161025, end: 20161102

REACTIONS (2)
  - Pneumomediastinum [Recovered/Resolved]
  - Respiratory disorder [Recovered/Resolved]

NARRATIVE: CASE EVENT DATE: 20161028
